FAERS Safety Report 8795602 (Version 1)
Quarter: 2012Q4

REPORT INFORMATION
  Report Type: 
  Country: US (occurrence: US)
  Receive Date: 20120917
  Receipt Date: 20120917
  Transmission Date: 20130627
  Serious: No
  Sender: FDA-Public Use
  Company Number: US-ASTRAZENECA-2012SE57601

PATIENT
  Age: 55 Year
  Sex: Female
  Weight: 79.4 kg

DRUGS (3)
  1. SEROQUEL [Suspect]
     Indication: SLEEP DISORDER
     Route: 048
  2. DEPAKOTE [Concomitant]
  3. REMERON [Concomitant]

REACTIONS (6)
  - Hypertension [Unknown]
  - Thyroid disorder [Unknown]
  - Back disorder [Unknown]
  - Musculoskeletal discomfort [Unknown]
  - Blood cholesterol increased [Unknown]
  - Off label use [Unknown]
